FAERS Safety Report 19098455 (Version 2)
Quarter: 2021Q2

REPORT INFORMATION
  Report Type: Spontaneous
  Country: US (occurrence: US)
  Receive Date: 20210406
  Receipt Date: 20210621
  Transmission Date: 20210717
  Serious: Yes (Hospitalization)
  Sender: FDA-Public Use
  Company Number: US-TEVA-2021-US-1895706

PATIENT
  Age: 17 Year
  Sex: Female

DRUGS (10)
  1. ADRIAMYCIN [Suspect]
     Active Substance: DOXORUBICIN HYDROCHLORIDE
     Indication: VANISHING BILE DUCT SYNDROME
     Dosage: INCREASED DOSING TO 75%
     Route: 065
  2. PREDNISONE. [Suspect]
     Active Substance: PREDNISONE
     Indication: HODGKIN^S DISEASE NODULAR SCLEROSIS STAGE III
     Dosage: GIVEN AT 100% DOSE
     Route: 065
  3. BLEOMYCIN [Suspect]
     Active Substance: BLEOMYCIN SULFATE
     Indication: HODGKIN^S DISEASE NODULAR SCLEROSIS STAGE III
     Dosage: GIVEN AT 50% DOSE
     Route: 065
  4. CYCLOPHOSPHAMIDE. [Suspect]
     Active Substance: CYCLOPHOSPHAMIDE
     Indication: HODGKIN^S DISEASE NODULAR SCLEROSIS STAGE III
     Dosage: GIVEN AT 50% DOSE
     Route: 065
  5. BLEOMYCIN [Suspect]
     Active Substance: BLEOMYCIN SULFATE
     Indication: VANISHING BILE DUCT SYNDROME
     Dosage: INCREASED DOSING TO 75%
     Route: 065
  6. ADRIAMYCIN [Suspect]
     Active Substance: DOXORUBICIN HYDROCHLORIDE
     Indication: HODGKIN^S DISEASE NODULAR SCLEROSIS STAGE III
     Dosage: GIVEN AT 50% DOSE
     Route: 065
  7. ETOPOSIDE. [Suspect]
     Active Substance: ETOPOSIDE
     Indication: HODGKIN^S DISEASE NODULAR SCLEROSIS STAGE III
     Dosage: GIVEN AT 50% DOSE
     Route: 065
  8. ETOPOSIDE. [Suspect]
     Active Substance: ETOPOSIDE
     Indication: VANISHING BILE DUCT SYNDROME
     Dosage: INCREASED DOSING TO 75%
     Route: 065
  9. PREDNISONE. [Suspect]
     Active Substance: PREDNISONE
     Indication: VANISHING BILE DUCT SYNDROME
  10. CYCLOPHOSPHAMIDE. [Suspect]
     Active Substance: CYCLOPHOSPHAMIDE
     Indication: VANISHING BILE DUCT SYNDROME
     Dosage: INCREASED DOSING TO 75%
     Route: 065

REACTIONS (3)
  - Bilirubin conjugated increased [Recovered/Resolved]
  - Toxicity to various agents [Recovered/Resolved]
  - Blood bilirubin increased [Recovered/Resolved]
